FAERS Safety Report 6353132-5 (Version None)
Quarter: 2009Q3

REPORT INFORMATION
  Report Type: 
  Country: None (occurrence: None)
  Receive Date: 20090912
  Receipt Date: 20090622
  Transmission Date: 20100115
  Serious: No
  Sender: FDA-Public Use
  Company Number: US-ABBOTT-08P-163-0452880-00

PATIENT
  Sex: Female
  Weight: 74.91 kg

DRUGS (11)
  1. HUMIRA [Suspect]
     Indication: RHEUMATOID ARTHRITIS
     Route: 058
     Dates: start: 20030901, end: 20070501
  2. HUMIRA [Suspect]
     Indication: RHEUMATOID ARTHRITIS
     Route: 058
     Dates: start: 20070101
  3. VALSARTAN [Concomitant]
     Indication: HYPERTENSION
     Route: 048
     Dates: start: 20070101
  4. LOTAB [Concomitant]
     Indication: PAIN
     Dosage: 5/500 MG 2 DAILY ORDERED 3 DAILY, 5/500 MG 2-3 DAILY
     Route: 048
     Dates: start: 20020101
  5. ZOLPIDEM TARTRATE [Concomitant]
     Indication: SLEEP DISORDER THERAPY
     Route: 048
  6. BUDESONIDE [Concomitant]
     Indication: SEASONAL ALLERGY
     Dosage: NASAL SPRAY
  7. EPINASTINE HYDROCHLORIDE [Concomitant]
     Indication: DACRYOSTENOSIS ACQUIRED
     Route: 061
     Dates: start: 20070101
  8. FLUVASTATIN [Concomitant]
     Indication: BLOOD CHOLESTEROL
     Dosage: 80 MG 0.5 PILL DAILY
     Route: 048
     Dates: start: 20070101
  9. ASPIRIN [Concomitant]
     Indication: CARDIOVASCULAR EVENT PROPHYLAXIS
     Route: 048
  10. MULTI-VITAMIN [Concomitant]
     Indication: VITAMIN SUPPLEMENTATION
     Route: 048
  11. CALCIUM WITH VITAMIN D [Concomitant]
     Indication: MINERAL SUPPLEMENTATION
     Dosage: 500 MG/200 UNITS ONE DAILY
     Route: 048
     Dates: start: 20071001

REACTIONS (3)
  - INCORRECT DOSE ADMINISTERED [None]
  - INJECTION SITE IRRITATION [None]
  - INJECTION SITE URTICARIA [None]
